FAERS Safety Report 20567289 (Version 1)
Quarter: 2022Q1

REPORT INFORMATION
  Report Type: Spontaneous
  Country: US (occurrence: US)
  Receive Date: 20220308
  Receipt Date: 20220308
  Transmission Date: 20220423
  Serious: No
  Sender: FDA-Public Use
  Company Number: US-BAUSCH-BL-2022-005471

PATIENT
  Age: 87 Year
  Sex: Male
  Weight: 59.42 kg

DRUGS (9)
  1. DORZOLAMIDE HYDROCHLORIDE [Suspect]
     Active Substance: DORZOLAMIDE HYDROCHLORIDE
     Indication: Glaucoma
     Dosage: 2% DROPS, TWICE A DAY
     Route: 047
  2. LATANOPROST [Suspect]
     Active Substance: LATANOPROST
     Indication: Glaucoma
     Dosage: 0.005% EYE DROPS ONCE A DAY AT BEDTIME
     Route: 047
  3. COMBIGAN [Suspect]
     Active Substance: BRIMONIDINE TARTRATE\TIMOLOL MALEATE
     Indication: Glaucoma
     Dosage: 0.27% TO 2.5%, TWICE A DAY
     Route: 065
  4. VYNDAMAX [Concomitant]
     Active Substance: TAFAMIDIS
     Indication: Protein total
     Dosage: 61 MG CAPSULE, ONCE A DAY
     Dates: start: 2021
  5. BENAZEPRIL [Concomitant]
     Active Substance: BENAZEPRIL HYDROCHLORIDE
     Indication: Blood pressure measurement
  6. LEVOTHYROXINE [Concomitant]
     Active Substance: LEVOTHYROXINE
     Indication: Thyroid disorder
     Dosage: 100 MCG ONCE A DAY
  7. SIMVASTATIN [Concomitant]
     Active Substance: SIMVASTATIN
     Indication: Blood cholesterol
     Dosage: 40 MG ONCE A DAY
  8. ASPIRIN [Concomitant]
     Active Substance: ASPIRIN
     Indication: Product used for unknown indication
     Dosage: 81 MG ONCE DAY
  9. REFRESH CLASSIC [Concomitant]
     Active Substance: POLYVINYL ALCOHOL\POVIDONE
     Indication: Product used for unknown indication
     Dosage: EYE TEARS

REACTIONS (1)
  - Instillation site pruritus [Unknown]
